FAERS Safety Report 6894905-X (Version None)
Quarter: 2010Q3

REPORT INFORMATION
  Report Type: 
  Country: None (occurrence: None)
  Receive Date: 20100802
  Receipt Date: 20100722
  Transmission Date: 20110219
  Serious: Yes (Life-Threatening)
  Sender: FDA-Public Use
  Company Number: US-ROCHE-710719

PATIENT
  Sex: Female
  Weight: 89.8 kg

DRUGS (4)
  1. HERCEPTIN [Suspect]
     Indication: BREAST CANCER
     Dosage: DOSE REPORTED AS 376 MG (4MG/KG)
     Route: 042
     Dates: start: 20100324
  2. HERCEPTIN [Suspect]
     Route: 042
     Dates: start: 20100715
  3. TAXOTERE [Suspect]
     Indication: PRODUCT USED FOR UNKNOWN INDICATION
     Route: 065
  4. TAXOL [Suspect]
     Route: 065

REACTIONS (1)
  - HEPATIC FAILURE [None]
